FAERS Safety Report 8299752-2 (Version None)
Quarter: 2012Q2

REPORT INFORMATION
  Report Type: 
  Country: None (occurrence: None)
  Receive Date: 20120419
  Receipt Date: 20120411
  Transmission Date: 20120825
  Serious: Yes (Hospitalization)
  Sender: FDA-Public Use
  Company Number: US-MERCK-1109USA00699

PATIENT
  Age: 61 Year
  Sex: Female
  Weight: 55 kg

DRUGS (13)
  1. FOSAMAX [Suspect]
     Route: 048
     Dates: start: 20071117
  2. FOSAMAX PLUS D [Suspect]
     Indication: OSTEOPENIA
     Route: 048
     Dates: start: 20060515, end: 20080301
  3. OMEGA-3 MARINE TRIGLYCERIDES [Concomitant]
     Route: 065
     Dates: start: 19900101
  4. FOSAMAX [Suspect]
     Route: 048
     Dates: start: 20040101, end: 20060401
  5. CALCIUM (UNSPECIFIED) [Concomitant]
     Route: 065
     Dates: start: 19900101
  6. FOSAMAX [Suspect]
     Indication: OSTEOPENIA
     Route: 048
     Dates: start: 19950101, end: 20100801
  7. FOSAMAX PLUS D [Suspect]
     Route: 048
     Dates: start: 20080429, end: 20090201
  8. FOSAMAX [Suspect]
     Indication: OSTEOPOROSIS
     Route: 048
     Dates: start: 19950101, end: 20100801
  9. FOSAMAX [Suspect]
     Route: 048
     Dates: start: 20071117
  10. VITAMINS (UNSPECIFIED) [Concomitant]
     Route: 065
     Dates: start: 19900101
  11. FOSAMAX [Suspect]
     Route: 048
     Dates: start: 20040101, end: 20060401
  12. ALENDRONATE SODIUM [Suspect]
     Indication: OSTEOPENIA
     Route: 048
     Dates: start: 20090313, end: 20101201
  13. VITA C [Concomitant]
     Route: 065
     Dates: start: 19900101

REACTIONS (22)
  - BUNDLE BRANCH BLOCK RIGHT [None]
  - SINUS BRADYCARDIA [None]
  - LOW TURNOVER OSTEOPATHY [None]
  - HORMONE THERAPY [None]
  - HYPERTENSION [None]
  - OSTEOARTHRITIS [None]
  - FALL [None]
  - CARDIAC MURMUR [None]
  - BLOOD CHOLESTEROL INCREASED [None]
  - GASTROOESOPHAGEAL REFLUX DISEASE [None]
  - INTERVERTEBRAL DISC DEGENERATION [None]
  - BACK PAIN [None]
  - ARTHRALGIA [None]
  - SCIATICA [None]
  - HYPERLIPIDAEMIA [None]
  - HAEMORRHOIDS [None]
  - HYPERCALCIURIA [None]
  - CATARACT [None]
  - FEMUR FRACTURE [None]
  - COLONIC POLYP [None]
  - PAIN IN EXTREMITY [None]
  - CHEST PAIN [None]
